FAERS Safety Report 19288157 (Version 1)
Quarter: 2021Q2

REPORT INFORMATION
  Report Type: Spontaneous
  Country: US (occurrence: US)
  Receive Date: 20210521
  Receipt Date: 20210521
  Transmission Date: 20210717
  Serious: Yes (Other)
  Sender: FDA-Public Use
  Company Number: US-LUPIN PHARMACEUTICALS INC.-2021-07643

PATIENT
  Age: 81 Year
  Sex: Female

DRUGS (6)
  1. METHYLPREDNISOLONE. [Suspect]
     Active Substance: METHYLPREDNISOLONE
     Indication: COVID-19
     Dosage: 25 MILLIGRAM, BID, FOR 4 DAYS
     Route: 065
     Dates: start: 2020
  2. HYDROXYCHLOROQUINE [Suspect]
     Active Substance: HYDROXYCHLOROQUINE
     Indication: COVID-19
     Dosage: UNK
     Route: 065
     Dates: start: 2020
  3. ANAKINRA [Suspect]
     Active Substance: ANAKINRA
     Indication: COVID-19
     Dosage: 100 MG EVERY 6 HOURS INITIALLY
     Route: 058
     Dates: start: 2020
  4. ANAKINRA [Suspect]
     Active Substance: ANAKINRA
     Dosage: 100 MILLIGRAM, TID, ADMINISTERED FROM DAY 4
     Route: 058
     Dates: start: 2020
  5. ANAKINRA [Suspect]
     Active Substance: ANAKINRA
     Dosage: 100 MILLIGRAM, QD, ADMINISTERED FROM DAY 11 AND CONTINUED TILL DAY 12
     Route: 058
     Dates: start: 2020
  6. ANAKINRA [Suspect]
     Active Substance: ANAKINRA
     Dosage: 100 MILLIGRAM, BID, ADMINISTERED FROM DAY 95
     Route: 058
     Dates: start: 2020

REACTIONS (1)
  - Off label use [Unknown]

NARRATIVE: CASE EVENT DATE: 2020
